FAERS Safety Report 7055146-9 (Version None)
Quarter: 2010Q4

REPORT INFORMATION
  Report Type: 
  Country: None (occurrence: None)
  Receive Date: 20101020
  Receipt Date: 20101020
  Transmission Date: 20110411
  Serious: Yes (Other)
  Sender: FDA-Public Use
  Company Number: None

PATIENT
  Sex: Female
  Weight: 54.4316 kg

DRUGS (1)
  1. WELLBUTRIN XL [Suspect]
     Indication: MENOPAUSAL SYMPTOMS
     Dosage: 300 DAILY ORALLY,PASTYEAR
     Route: 048

REACTIONS (1)
  - NERVOUS SYSTEM DISORDER [None]
